FAERS Safety Report 15361677 (Version 1)
Quarter: 2018Q3

REPORT INFORMATION
  Report Type: Spontaneous
  Country: US (occurrence: US)
  Receive Date: 20180831
  Receipt Date: 20180831
  Transmission Date: 20181010
  Serious: Yes (Hospitalization)
  Sender: FDA-Public Use
  Company Number: None

PATIENT
  Age: 43 Year
  Sex: Male

DRUGS (8)
  1. ATORVASTATIN [Concomitant]
     Active Substance: ATORVASTATIN
  2. COSENTYX [Suspect]
     Active Substance: SECUKINUMAB
     Indication: PSORIASIS
     Dosage: ?          OTHER FREQUENCY:Q4W;?
     Route: 058
     Dates: start: 20180602
  3. DICLOFEN POT [Concomitant]
  4. EPINEPHRINE. [Concomitant]
     Active Substance: EPINEPHRINE
  5. HALOBETASOL [Concomitant]
     Active Substance: HALOBETASOL PROPIONATE
  6. LISINOPRIL. [Concomitant]
     Active Substance: LISINOPRIL
  7. METOPROL SUC [Concomitant]
  8. NAPROXEN. [Concomitant]
     Active Substance: NAPROXEN

REACTIONS (3)
  - Drug dose omission [None]
  - Swelling [None]
  - Pneumonia [None]

NARRATIVE: CASE EVENT DATE: 20180816
